FAERS Safety Report 19468874 (Version 1)
Quarter: 2021Q2

REPORT INFORMATION
  Report Type: Spontaneous
  Country: JP (occurrence: JP)
  Receive Date: 20210628
  Receipt Date: 20210628
  Transmission Date: 20210717
  Serious: Yes (Other)
  Sender: FDA-Public Use
  Company Number: JP-AMGEN-JPNSP2021096876

PATIENT
  Age: 23 Year
  Sex: Male

DRUGS (10)
  1. DOXORUBICIN [Concomitant]
     Active Substance: DOXORUBICIN
  2. TISAGENLECLEUCEL?T [Concomitant]
     Active Substance: TISAGENLECLEUCEL
  3. BLINATUMOMAB [Suspect]
     Active Substance: BLINATUMOMAB
     Indication: ACUTE LYMPHOCYTIC LEUKAEMIA
     Dosage: UNK
     Route: 065
  4. DEXAMETHASONE. [Concomitant]
     Active Substance: DEXAMETHASONE
  5. CYTARABINE. [Concomitant]
     Active Substance: CYTARABINE
  6. VINCRISTINE [VINCRISTINE SULFATE] [Concomitant]
     Active Substance: VINCRISTINE SULFATE
  7. METHOTREXATE. [Concomitant]
     Active Substance: METHOTREXATE
  8. DASATINIB. [Concomitant]
     Active Substance: DASATINIB
  9. PONATINIB [Concomitant]
     Active Substance: PONATINIB
  10. CYCLOPHOSPHAMIDE. [Concomitant]
     Active Substance: CYCLOPHOSPHAMIDE

REACTIONS (3)
  - Cytokine release syndrome [Recovering/Resolving]
  - Acute lymphocytic leukaemia recurrent [Recovered/Resolved]
  - Neutrophil count decreased [Unknown]
